FAERS Safety Report 24774036 (Version 1)
Quarter: 2024Q4

REPORT INFORMATION
  Report Type: Spontaneous
  Country: US (occurrence: US)
  Receive Date: 20241225
  Receipt Date: 20241225
  Transmission Date: 20250115
  Serious: No
  Sender: SANOFI AVENTIS
  Company Number: US-SA-2024SA380564

PATIENT
  Age: 68 Year
  Sex: Male

DRUGS (3)
  1. KEVZARA [Suspect]
     Active Substance: SARILUMAB
     Indication: Rheumatoid arthritis
     Dosage: 200 MG, QOW
     Route: 058
     Dates: start: 202203
  2. KEVZARA [Suspect]
     Active Substance: SARILUMAB
     Indication: Psoriasis
  3. KEVZARA [Suspect]
     Active Substance: SARILUMAB
     Indication: Psoriasis

REACTIONS (2)
  - Oral infection [Unknown]
  - Product use in unapproved indication [Unknown]

NARRATIVE: CASE EVENT DATE: 20220301
